FAERS Safety Report 16954815 (Version 2)
Quarter: 2019Q4

REPORT INFORMATION
  Report Type: Spontaneous
  Country: US (occurrence: US)
  Receive Date: 20191024
  Receipt Date: 20191121
  Transmission Date: 20200122
  Serious: No
  Sender: FDA-Public Use
  Company Number: US-BIOGEN-2019BI00799644

PATIENT
  Sex: Female

DRUGS (4)
  1. TECFIDERA [Suspect]
     Active Substance: DIMETHYL FUMARATE
     Indication: MULTIPLE SCLEROSIS
     Route: 048
     Dates: start: 201808
  2. LYRICA [Concomitant]
     Active Substance: PREGABALIN
     Route: 065
  3. CELECOXIB. [Concomitant]
     Active Substance: CELECOXIB
     Route: 065
  4. PROZAC [Concomitant]
     Active Substance: FLUOXETINE HYDROCHLORIDE
     Route: 065

REACTIONS (5)
  - Off label use [Unknown]
  - Treatment noncompliance [Unknown]
  - Underdose [Unknown]
  - Flushing [Recovered/Resolved with Sequelae]
  - Rash pruritic [Recovered/Resolved with Sequelae]
